FAERS Safety Report 6732126-1 (Version None)
Quarter: 2010Q2

REPORT INFORMATION
  Report Type: 
  Country: None (occurrence: None)
  Receive Date: 20100519
  Receipt Date: 20100510
  Transmission Date: 20101027
  Serious: Yes (Hospitalization, Other)
  Sender: FDA-Public Use
  Company Number: US-BAYER-201015206BCC

PATIENT
  Age: 81 Year
  Sex: Male

DRUGS (9)
  1. ASPIRIN [Suspect]
     Indication: DRUG USE FOR UNKNOWN INDICATION
     Route: 048
  2. ASPIRIN [Suspect]
     Route: 048
  3. PLAVIX [Suspect]
     Indication: CORONARY ARTERIAL STENT INSERTION
     Route: 048
     Dates: start: 19990101
  4. INSULIN [Concomitant]
     Route: 065
  5. ANTIHYPERTENSIVES [Concomitant]
     Route: 065
  6. MEDICATION FOR HIGH CHOLESTEROL [Concomitant]
     Route: 065
  7. GARLIC [Concomitant]
     Route: 065
  8. COENZYME Q10 [Concomitant]
     Route: 065
  9. VITAMINS [Concomitant]
     Route: 065

REACTIONS (3)
  - DIARRHOEA HAEMORRHAGIC [None]
  - INTESTINAL HAEMORRHAGE [None]
  - PALPITATIONS [None]
